FAERS Safety Report 8576910-0 (Version None)
Quarter: 2012Q3

REPORT INFORMATION
  Report Type: 
  Country: None (occurrence: None)
  Receive Date: 20120807
  Receipt Date: 20120725
  Transmission Date: 20120928
  Serious: Yes (Disabling, Other)
  Sender: FDA-Public Use
  Company Number: CA-ROCHE-1093822

PATIENT
  Sex: Male
  Weight: 82.174 kg

DRUGS (14)
  1. HERCEPTIN [Suspect]
     Route: 042
     Dates: start: 20110722
  2. AVALIDE [Concomitant]
     Dosage: 150/12.5
  3. PANTOPRAZOLE [Concomitant]
  4. HERCEPTIN [Suspect]
     Route: 042
     Dates: start: 20110209
  5. SENOKOT [Concomitant]
     Indication: CONSTIPATION
  6. HERCEPTIN [Suspect]
     Route: 042
     Dates: start: 20110601
  7. AVALIDE [Concomitant]
     Indication: HYPERTENSION
     Dosage: 300/25
  8. DOCUSATE [Concomitant]
     Indication: CONSTIPATION
  9. HERCEPTIN [Suspect]
     Route: 042
     Dates: start: 20110622
  10. HERCEPTIN [Suspect]
     Route: 042
     Dates: start: 20110810
  11. PANTOPRAZOLE SODIUM [Concomitant]
     Route: 048
  12. HERCEPTIN [Suspect]
     Indication: METASTATIC GASTRIC CANCER
     Route: 042
     Dates: start: 20110119
  13. DILAUDID [Concomitant]
     Indication: PAIN
  14. SOLUCORT [Concomitant]
     Indication: PRODUCT USED FOR UNKNOWN INDICATION
     Dosage: ONCE
     Route: 042
     Dates: start: 20120725, end: 20120725

REACTIONS (7)
  - WHITE BLOOD CELL COUNT DECREASED [None]
  - HEPATIC MASS [None]
  - EOSINOPHIL COUNT INCREASED [None]
  - ARTHRALGIA [None]
  - FATIGUE [None]
  - BLOOD PRESSURE INCREASED [None]
  - LYMPHOCYTE COUNT DECREASED [None]
